FAERS Safety Report 7482005-X (Version None)
Quarter: 2011Q2

REPORT INFORMATION
  Report Type: 
  Country: None (occurrence: None)
  Receive Date: 20110516
  Receipt Date: 20110502
  Transmission Date: 20111010
  Serious: Yes (Other)
  Sender: FDA-Public Use
  Company Number: JP-JNJFOC-20110106357

PATIENT
  Age: 16 Year
  Sex: Male
  Weight: 37 kg

DRUGS (7)
  1. REMICADE [Suspect]
     Indication: ANKYLOSING SPONDYLITIS
     Route: 042
     Dates: start: 20100811
  2. REMICADE [Suspect]
     Route: 042
     Dates: start: 20100922
  3. ISONIAZID [Concomitant]
     Indication: ANTIBIOTIC PROPHYLAXIS
     Dates: start: 20100726
  4. REMICADE [Suspect]
     Dosage: 5TH INFUSION
     Route: 042
     Dates: start: 20101222
  5. NSAID [Concomitant]
     Indication: ANKYLOSING SPONDYLITIS
  6. REMICADE [Suspect]
     Dosage: TOTAL 3 INFUSIONS
     Route: 042
     Dates: start: 20100728
  7. REMICADE [Suspect]
     Dosage: 4TH INFUSION
     Route: 042
     Dates: start: 20101110

REACTIONS (2)
  - URTICARIA [None]
  - INFUSION RELATED REACTION [None]
